FAERS Safety Report 11863800 (Version 1)
Quarter: 2015Q4

REPORT INFORMATION
  Report Type: Spontaneous
  Country: US (occurrence: US)
  Receive Date: 20151223
  Receipt Date: 20151223
  Transmission Date: 20160305
  Serious: Yes (Disabling, Other)
  Sender: FDA-Public Use
  Company Number: US-009507513-1512USA011352

PATIENT
  Age: 84 Year
  Sex: Female

DRUGS (1)
  1. FOSAMAX [Suspect]
     Active Substance: ALENDRONATE SODIUM
     Indication: OSTEOPOROSIS
     Route: 048

REACTIONS (2)
  - Osteoporosis [Not Recovered/Not Resolved]
  - Femur fracture [Not Recovered/Not Resolved]
